FAERS Safety Report 7267249-4 (Version None)
Quarter: 2011Q1

REPORT INFORMATION
  Report Type: 
  Country: None (occurrence: None)
  Receive Date: 20110201
  Receipt Date: 20101220
  Transmission Date: 20110831
  Serious: No
  Sender: FDA-Public Use
  Company Number: A0900612A

PATIENT
  Sex: Female

DRUGS (1)
  1. VELTIN [Suspect]
     Dosage: 1APP PER DAY
     Route: 061
     Dates: start: 20101214, end: 20101218

REACTIONS (3)
  - APPLICATION SITE PAIN [None]
  - SKIN EXFOLIATION [None]
  - RASH ERYTHEMATOUS [None]
